FAERS Safety Report 11223606 (Version 2)
Quarter: 2015Q2

REPORT INFORMATION
  Report Type: Spontaneous
  Country: TR (occurrence: TR)
  Receive Date: 20150629
  Receipt Date: 20150629
  Transmission Date: 20150821
  Serious: Yes (Hospitalization, Other)
  Sender: FDA-Public Use
  Company Number: TR-ORION CORPORATION ORION PHARMA-ENT 2015-0931

PATIENT
  Age: 75 Year
  Sex: Female

DRUGS (7)
  1. DOMPERIDONE [Suspect]
     Active Substance: DOMPERIDONE
     Indication: VERTIGO
     Route: 065
  2. BETAHISTINE [Suspect]
     Active Substance: BETAHISTINE
     Indication: VERTIGO
     Route: 065
  3. L DOPA [Suspect]
     Active Substance: LEVODOPA
     Indication: NEURODEGENERATIVE DISORDER
     Route: 065
  4. CARBIDOPA. [Suspect]
     Active Substance: CARBIDOPA
     Indication: NEURODEGENERATIVE DISORDER
     Route: 065
  5. ENTACAPONE. [Suspect]
     Active Substance: ENTACAPONE
     Indication: NEURODEGENERATIVE DISORDER
     Route: 065
  6. PAROXETINE [Suspect]
     Active Substance: PAROXETINE\PAROXETINE HYDROCHLORIDE
     Indication: DEPRESSION
     Route: 065
  7. AMANTADINE [Suspect]
     Active Substance: AMANTADINE
     Indication: NEURODEGENERATIVE DISORDER
     Route: 065

REACTIONS (2)
  - Neuroleptic malignant syndrome [Recovered/Resolved]
  - Product use issue [Recovered/Resolved]
